FAERS Safety Report 23291317 (Version 1)
Quarter: 2023Q4

REPORT INFORMATION
  Report Type: Spontaneous
  Country: FR (occurrence: FR)
  Receive Date: 20231213
  Receipt Date: 20231213
  Transmission Date: 20240110
  Serious: Yes (Death)
  Sender: FDA-Public Use
  Company Number: FR-IMMUNOCORE, LTD.-2023-IMC-002088

PATIENT

DRUGS (1)
  1. TEBENTAFUSP [Suspect]
     Active Substance: TEBENTAFUSP
     Indication: Product used for unknown indication
     Dosage: UNK
     Dates: start: 20220720, end: 20230717

REACTIONS (2)
  - Death [Fatal]
  - Therapy cessation [Unknown]
